FAERS Safety Report 18433938 (Version 2)
Quarter: 2021Q1

REPORT INFORMATION
  Report Type: Other
  Country: US (occurrence: US)
  Receive Date: 20201028
  Receipt Date: 20210212
  Transmission Date: 20210419
  Serious: Yes (Hospitalization, Other)
  Sender: FDA-Public Use
  Company Number: US-INTERCEPT-PM2020002118

PATIENT
  Age: 54 Year
  Sex: Female

DRUGS (13)
  1. TORSEMIDE. [Concomitant]
     Active Substance: TORSEMIDE
     Dosage: 10 MILLIGRAM
  2. METFORMIN [Concomitant]
     Active Substance: METFORMIN HYDROCHLORIDE
  3. VITAMIN B6 [Concomitant]
     Active Substance: PYRIDOXINE HYDROCHLORIDE
  4. OCALIVA [Suspect]
     Active Substance: OBETICHOLIC ACID
     Indication: PRIMARY BILIARY CHOLANGITIS
     Dosage: 5 MILLIGRAM, QD
     Route: 048
     Dates: start: 20190413
  5. SPIRONOLACTONE. [Suspect]
     Active Substance: SPIRONOLACTONE
     Indication: PRODUCT USED FOR UNKNOWN INDICATION
     Dosage: UNK
     Dates: start: 20201009, end: 20201010
  6. LEVOTHYROXIN [Concomitant]
     Active Substance: LEVOTHYROXINE
  7. SIMVASTATIN. [Concomitant]
     Active Substance: SIMVASTATIN
  8. ACTIGALL [Concomitant]
     Active Substance: URSODIOL
  9. BENLYSTA [Concomitant]
     Active Substance: BELIMUMAB
     Indication: SYSTEMIC LUPUS ERYTHEMATOSUS
  10. VITAMIN C [Concomitant]
     Active Substance: ASCORBIC ACID
  11. TORSEMIDE. [Concomitant]
     Active Substance: TORSEMIDE
     Dosage: 20 MILLIGRAM
     Dates: start: 20201009
  12. BACTRIM DS [Suspect]
     Active Substance: SULFAMETHOXAZOLE\TRIMETHOPRIM
     Indication: SKIN ULCER
     Dosage: UNK
     Dates: start: 20200921, end: 20200928
  13. OCALIVA [Suspect]
     Active Substance: OBETICHOLIC ACID
     Dosage: 5 MILLIGRAM, QOD
     Route: 048
     Dates: start: 20210104

REACTIONS (20)
  - Gastrointestinal ulcer [Unknown]
  - Haematemesis [Unknown]
  - Sleep disorder [Unknown]
  - Decreased immune responsiveness [Unknown]
  - Alanine aminotransferase abnormal [Recovering/Resolving]
  - Pyrexia [Unknown]
  - Blood alkaline phosphatase abnormal [Recovering/Resolving]
  - Varices oesophageal [Recovered/Resolved]
  - Skin lesion [Unknown]
  - Rash [Unknown]
  - Hepatotoxicity [Unknown]
  - Surgery [Recovered/Resolved]
  - Ascites [Unknown]
  - Scratch [Unknown]
  - Abdominal distension [Unknown]
  - Aspartate aminotransferase abnormal [Recovering/Resolving]
  - Internal haemorrhage [Recovered/Resolved]
  - Diarrhoea haemorrhagic [Unknown]
  - Cough [Unknown]
  - Skin ulcer [Unknown]

NARRATIVE: CASE EVENT DATE: 2020
